FAERS Safety Report 4389743-6 (Version None)
Quarter: 2004Q2

REPORT INFORMATION
  Report Type: 
  Country: None (occurrence: None)
  Receive Date: 20040630
  Receipt Date: 20040618
  Transmission Date: 20050107
  Serious: Yes (Life-Threatening, Hospitalization, Other)
  Sender: FDA-Public Use
  Company Number: 2004-06-1166

PATIENT
  Age: 39 Year
  Sex: Female

DRUGS (3)
  1. VIRFERONPEG (PEG  INTERFERON ALFA-2B RECOMBINANT) MULTIDOSE PEN [Suspect]
     Indication: HEPATITIS C
     Dosage: 80 MCG QWK SUBCUTANEOUS
     Route: 058
     Dates: start: 20030601, end: 20040109
  2. REBETOL [Suspect]
     Indication: HEPATITIS C
     Dosage: 800 MG QD ORAL
     Route: 048
     Dates: start: 20030601, end: 20040116
  3. TRIZIVIR [Concomitant]

REACTIONS (4)
  - AUTOIMMUNE THROMBOCYTOPENIA [None]
  - CHOLANGITIS [None]
  - GASTROINTESTINAL HAEMORRHAGE [None]
  - POST PROCEDURAL COMPLICATION [None]
